FAERS Safety Report 11328297 (Version 1)
Quarter: 2015Q3

REPORT INFORMATION
  Report Type: Spontaneous
  Country: US (occurrence: US)
  Receive Date: 20150731
  Receipt Date: 20150731
  Transmission Date: 20151125
  Serious: No
  Sender: FDA-Public Use
  Company Number: US-TAKEDA-2014TUS011572

PATIENT
  Sex: Female
  Weight: 65.76 kg

DRUGS (3)
  1. MELOXICAM. [Concomitant]
     Active Substance: MELOXICAM
     Dosage: 15 MG, QD
     Route: 048
     Dates: start: 20141108
  2. MELOXICAM. [Concomitant]
     Active Substance: MELOXICAM
     Indication: CHONDROCALCINOSIS PYROPHOSPHATE
     Dosage: 15 MG, QD
     Route: 048
     Dates: end: 20141101
  3. COLCRYS [Suspect]
     Active Substance: COLCHICINE
     Indication: CHONDROCALCINOSIS PYROPHOSPHATE
     Dosage: 1 TABLET, BID
     Route: 048
     Dates: start: 20141103

REACTIONS (2)
  - Drug ineffective [Recovering/Resolving]
  - Diarrhoea [Recovering/Resolving]
